FAERS Safety Report 8608587-X (Version None)
Quarter: 2012Q3

REPORT INFORMATION
  Report Type: 
  Country: None (occurrence: None)
  Receive Date: 20120806
  Receipt Date: 20120727
  Transmission Date: 20120928
  Serious: Yes (Hospitalization)
  Sender: FDA-Public Use
  Company Number: DSA_58799_2012

PATIENT
  Age: 72 Year
  Sex: Female

DRUGS (7)
  1. ESIDRIX [Suspect]
     Indication: PRODUCT USED FOR UNKNOWN INDICATION
     Dosage: (DF ORAL)
     Route: 048
     Dates: start: 20120401, end: 20120603
  2. PLAVIX [Concomitant]
  3. SECTRAL [Concomitant]
  4. FLAGYL [Suspect]
     Indication: PRODUCT USED FOR UNKNOWN INDICATION
     Dosage: (500 MG TID ORAL)
     Route: 048
     Dates: start: 20120401
  5. ATACAND [Suspect]
     Indication: PRODUCT USED FOR UNKNOWN INDICATION
     Dosage: (DF ORAL)
     Route: 048
     Dates: start: 20120401, end: 20120603
  6. ACETAMINOPHEN [Concomitant]
  7. NEXIUM [Suspect]
     Indication: PRODUCT USED FOR UNKNOWN INDICATION
     Dosage: (20 MG, DAILY ORAL)
     Route: 048
     Dates: start: 20120401, end: 20120703

REACTIONS (5)
  - PLEURISY [None]
  - BLOOD CREATININE INCREASED [None]
  - VASCULAR PURPURA [None]
  - PURULENCE [None]
  - STAPHYLOCOCCAL INFECTION [None]
